FAERS Safety Report 16631438 (Version 1)
Quarter: 2019Q3

REPORT INFORMATION
  Report Type: Spontaneous
  Country: DE (occurrence: DE)
  Receive Date: 20190725
  Receipt Date: 20190725
  Transmission Date: 20191004
  Serious: Yes (Hospitalization)
  Sender: FDA-Public Use
  Company Number: DE-TEVA-2019-DE-1083057

PATIENT
  Age: 93 Year
  Sex: Female
  Weight: 45 kg

DRUGS (3)
  1. RAMIPRIL. [Concomitant]
     Active Substance: RAMIPRIL
     Dosage: 2.5 MG, 1-0-1, TABLETS
     Route: 048
  2. FUROSEMIDE. [Suspect]
     Active Substance: FUROSEMIDE
     Dosage: 20 MG, 1-0-0; SINCE 03.11.2017, TABLETS
     Route: 048
  3. LEVOTHYROXIN NATRIUM [Concomitant]
     Dosage: 50 MICROGRAM, 1-0-0, TABLETS
     Route: 048

REACTIONS (4)
  - Dyspnoea [Unknown]
  - Rash [Unknown]
  - Asthenia [Unknown]
  - Medication error [Unknown]
